FAERS Safety Report 23787725 (Version 2)
Quarter: 2024Q2

REPORT INFORMATION
  Report Type: Spontaneous
  Country: US (occurrence: US)
  Receive Date: 20240426
  Receipt Date: 20240614
  Transmission Date: 20240715
  Serious: No
  Sender: FDA-Public Use
  Company Number: US-GLAXOSMITHKLINE-US2024049993

PATIENT
  Sex: Female
  Weight: 56.9 kg

DRUGS (1)
  1. ZEJULA [Suspect]
     Active Substance: NIRAPARIB
     Indication: Breast cancer female
     Dosage: 200 MG, QD
     Dates: start: 20240326

REACTIONS (3)
  - Nausea [Recovered/Resolved]
  - Dry mouth [Unknown]
  - Product use in unapproved indication [Unknown]
